FAERS Safety Report 12764397 (Version 3)
Quarter: 2016Q4

REPORT INFORMATION
  Report Type: Report from Study
  Country: CZ (occurrence: CZ)
  Receive Date: 20160920
  Receipt Date: 20161102
  Transmission Date: 20170207
  Serious: Yes (Hospitalization)
  Sender: FDA-Public Use
  Company Number: CZ-ROCHE-1831855

PATIENT
  Age: 67 Year
  Sex: Male
  Weight: 126 kg

DRUGS (29)
  1. PARACETAMOL [Concomitant]
     Active Substance: ACETAMINOPHEN
     Route: 065
     Dates: start: 20160811, end: 20160811
  2. METOCLOPRAMIDE. [Concomitant]
     Active Substance: METOCLOPRAMIDE
     Route: 065
     Dates: start: 20160811, end: 20160815
  3. CYCLOPHOSPHAMIDE. [Suspect]
     Active Substance: CYCLOPHOSPHAMIDE
     Indication: B-CELL LYMPHOMA
     Dosage: ROUTE, UNIT DOSE AND UNIT PER PROTOCOL?MOST RECENT DOSE PRIOR TO AE ONSET: 11 /AUG/2016 1897 MG AT 1
     Route: 042
     Dates: start: 20160517
  4. CYCLOPHOSPHAMIDE. [Suspect]
     Active Substance: CYCLOPHOSPHAMIDE
     Route: 042
     Dates: start: 20160720, end: 20160720
  5. DOXORUBICIN [Suspect]
     Active Substance: DOXORUBICIN
     Indication: CHEMOTHERAPY
     Route: 042
     Dates: start: 20160720, end: 20160720
  6. PARACETAMOL [Concomitant]
     Active Substance: ACETAMINOPHEN
     Indication: PREMEDICATION
     Route: 065
     Dates: start: 20160720, end: 20160720
  7. ONDANSETRON [Concomitant]
     Active Substance: ONDANSETRON
     Route: 065
     Dates: start: 20160811, end: 20160811
  8. DOXORUBICIN [Suspect]
     Active Substance: DOXORUBICIN
     Indication: B-CELL LYMPHOMA
     Dosage: ROUTE, UNIT DOSE AND UNIT PER PROTOCOL?MOST RECENT DOSE DOXORUBICIN PRIOR TO AE ONSET: 11 /AUG/2016
     Route: 042
     Dates: start: 20160518
  9. PREDNISONE. [Suspect]
     Active Substance: PREDNISONE
     Indication: B-CELL LYMPHOMA
     Dosage: ROUTE AND UNIT PER PROTOCOL?MOST RECENT DOSE PRIOR TO AE ONSET: 15/AUG/2016 AT 100 MG
     Route: 048
     Dates: start: 20160517
  10. SOLU-MEDROL [Concomitant]
     Active Substance: METHYLPREDNISOLONE SODIUM SUCCINATE
     Indication: PREMEDICATION
     Route: 065
     Dates: start: 20160720, end: 20160720
  11. ONDANSETRON [Concomitant]
     Active Substance: ONDANSETRON
     Route: 065
     Dates: start: 20160720, end: 20160720
  12. RITUXIMAB [Suspect]
     Active Substance: RITUXIMAB
     Indication: B-CELL LYMPHOMA
     Dosage: ROUTE, UNIT DOSE AND UNIT PER PROTOCOL?MOST RECENT DOSE  PRIOR TO AE ONSET: 11 /AUG/2016 948 MG  AT
     Route: 042
     Dates: start: 20160517
  13. VINCRISTINE [Suspect]
     Active Substance: VINCRISTINE
     Indication: CHEMOTHERAPY
     Route: 042
     Dates: start: 20160720, end: 20160720
  14. MILURIT [Concomitant]
     Active Substance: ALLOPURINOL
     Indication: PROPHYLAXIS
     Route: 065
     Dates: start: 20160509
  15. SOLU-MEDROL [Concomitant]
     Active Substance: METHYLPREDNISOLONE SODIUM SUCCINATE
     Route: 065
     Dates: start: 20160811, end: 20160811
  16. HELICID [Concomitant]
     Route: 065
     Dates: start: 20160720, end: 20160724
  17. METOCLOPRAMIDE. [Concomitant]
     Active Substance: METOCLOPRAMIDE
     Route: 065
     Dates: start: 20160720, end: 20160724
  18. ZARZIO [Concomitant]
     Active Substance: FILGRASTIM
     Route: 065
     Dates: start: 20160727, end: 20160731
  19. APO-ENALAPRIL [Concomitant]
     Active Substance: ENALAPRIL
     Indication: HYPERTENSION
  20. STADAMET [Concomitant]
     Active Substance: METFORMIN HYDROCHLORIDE
     Indication: DIABETES MELLITUS
  21. FRAXIPARINE [Concomitant]
     Active Substance: NADROPARIN CALCIUM
     Indication: THROMBOSIS PROPHYLAXIS
     Route: 065
     Dates: start: 20160504
  22. VENETOCLAX [Suspect]
     Active Substance: VENETOCLAX
     Indication: B-CELL LYMPHOMA
     Dosage: ROUTE AND UNITS PER PROTOCOL?MOST RECENT DOSE PRIOR TO AE ONSET: 19 /AUG/2016 800MG
     Route: 048
     Dates: start: 20160520
  23. DETRALEX [Concomitant]
     Active Substance: DIOSMIN\HESPERIDIN
     Indication: PERIPHERAL VENOUS DISEASE
  24. ALERID [Concomitant]
     Active Substance: CETIRIZINE HYDROCHLORIDE
     Route: 065
     Dates: start: 20160811, end: 20160811
  25. UROMITEXAN [Concomitant]
     Active Substance: MESNA
     Route: 065
     Dates: start: 20160811, end: 20160811
  26. ZARZIO [Concomitant]
     Active Substance: FILGRASTIM
     Route: 065
     Dates: start: 20160818, end: 20160823
  27. VINCRISTINE [Suspect]
     Active Substance: VINCRISTINE
     Indication: B-CELL LYMPHOMA
     Dosage: ROUTE AND UNIT PER PROTOCOL?MOST RECENT DOSE VINCRISTINE PRIOR TO AE ONSET: 11/AUG/2016 AT 1500 HOUR
     Route: 042
     Dates: start: 20160518
  28. ALERID [Concomitant]
     Active Substance: CETIRIZINE HYDROCHLORIDE
     Indication: PREMEDICATION
     Route: 065
     Dates: start: 20160720, end: 20160720
  29. UROMITEXAN [Concomitant]
     Active Substance: MESNA
     Indication: PROPHYLAXIS
     Route: 065
     Dates: start: 20160720, end: 20160720

REACTIONS (1)
  - Sinus tachycardia [Recovered/Resolved]

NARRATIVE: CASE EVENT DATE: 20160819
